FAERS Safety Report 12984002 (Version 3)
Quarter: 2016Q4

REPORT INFORMATION
  Report Type: Spontaneous
  Country: US (occurrence: US)
  Receive Date: 20161129
  Receipt Date: 20161202
  Transmission Date: 20170207
  Serious: No
  Sender: FDA-Public Use
  Company Number: US-PFIZER INC-2016542758

PATIENT
  Sex: Female

DRUGS (5)
  1. FENTANYL CITRATE. [Suspect]
     Active Substance: FENTANYL CITRATE
     Dosage: UNK
  2. DARVON [Suspect]
     Active Substance: PROPOXYPHENE HYDROCHLORIDE
     Dosage: UNK
  3. DARVOCET A500 [Suspect]
     Active Substance: ACETAMINOPHEN\PROPOXYPHENE NAPSYLATE
     Dosage: UNK
  4. PERCODAN [Suspect]
     Active Substance: ASPIRIN\OXYCODONE HYDROCHLORIDE
  5. DILAUDID [Suspect]
     Active Substance: HYDROMORPHONE HYDROCHLORIDE
     Dosage: UNK

REACTIONS (3)
  - Nausea [Unknown]
  - Vomiting [Unknown]
  - Drug hypersensitivity [Unknown]
